FAERS Safety Report 15975200 (Version 1)
Quarter: 2019Q1

REPORT INFORMATION
  Report Type: Report from Study
  Country: KR (occurrence: KR)
  Receive Date: 20190218
  Receipt Date: 20190218
  Transmission Date: 20190418
  Serious: Yes (Hospitalization, Other)
  Sender: FDA-Public Use
  Company Number: KR-SA-2019SA043143

PATIENT
  Age: 63 Year
  Sex: Male
  Weight: 70.8 kg

DRUGS (28)
  1. NALOXONE;OXYCODONE [Concomitant]
     Active Substance: NALOXONE HYDROCHLORIDE\OXYCODONE HYDROCHLORIDE
     Dosage: UNK
     Dates: start: 20171015
  2. GLICLAZIDE [Concomitant]
     Active Substance: GLICLAZIDE
     Dosage: UNK
     Dates: start: 20180314
  3. PALONOSETRON. [Concomitant]
     Active Substance: PALONOSETRON HYDROCHLORIDE
     Dosage: UNK
     Dates: start: 20180314, end: 20180328
  4. FLUOROURACIL. [Suspect]
     Active Substance: FLUOROURACIL
     Indication: PANCREATIC CARCINOMA METASTATIC
     Dosage: 730 MG, QCY
     Route: 040
     Dates: start: 20180207, end: 20180207
  5. NATURES WAY PRIMADOPHILUS BIFIDUS [Concomitant]
     Dosage: UNK
  6. DEXTROSE INJECTION [Concomitant]
     Active Substance: DEXTROSE
     Dosage: UNK
     Dates: start: 20180314, end: 20180328
  7. MAGNESIUM OXIDE. [Concomitant]
     Active Substance: MAGNESIUM OXIDE
     Dosage: UNK
     Dates: start: 20180328
  8. PENIRAMIN [Concomitant]
     Dosage: UNK
     Dates: start: 20180303, end: 20180404
  9. FLUOROURACIL. [Suspect]
     Active Substance: FLUOROURACIL
     Dosage: 4400 MG, QCY
     Route: 042
     Dates: start: 20180329, end: 20180329
  10. PANCREATIN [Concomitant]
     Active Substance: PANCRELIPASE
  11. CAMOSTAT MESILATE [Concomitant]
     Active Substance: CAMOSTAT MESYLATE
     Dosage: UNK
     Dates: start: 20180207
  12. GRANISETRON HCL [Concomitant]
     Dosage: UNK
     Dates: start: 20170805
  13. CALCIUM FOLINATE [Suspect]
     Active Substance: LEUCOVORIN CALCIUM
     Indication: PANCREATIC CARCINOMA METASTATIC
     Dosage: 730 MG, QCY
     Route: 042
     Dates: start: 20180207
  14. SIMVASTATIN. [Concomitant]
     Active Substance: SIMVASTATIN
  15. ONDANSETRON [Concomitant]
     Active Substance: ONDANSETRON
     Dosage: UNK
     Dates: start: 20180302, end: 20180404
  16. APREPITANT. [Concomitant]
     Active Substance: APREPITANT
     Dosage: UNK
     Dates: start: 20180314, end: 20180330
  17. ENCOVER [Concomitant]
     Dosage: UNK
     Dates: start: 20180123
  18. FLUOROURACIL. [Suspect]
     Active Substance: FLUOROURACIL
     Dosage: 730 MG, QCY
     Route: 042
     Dates: start: 20180329, end: 20180329
  19. LOSARTAN POTASSIUM. [Concomitant]
     Active Substance: LOSARTAN POTASSIUM
  20. OLMESARTAN MEDOXOMIL. [Concomitant]
     Active Substance: OLMESARTAN MEDOXOMIL
     Dosage: UNK
     Dates: start: 20180221
  21. METOCLOPRAMIDE HCL [Concomitant]
     Active Substance: METOCLOPRAMIDE HYDROCHLORIDE
     Dosage: UNK
     Dates: start: 20180304, end: 20180404
  22. FLUOROURACIL. [Suspect]
     Active Substance: FLUOROURACIL
     Dosage: 730 MG, QCY
     Route: 040
     Dates: start: 20180328, end: 20180328
  23. FLUOROURACIL. [Suspect]
     Active Substance: FLUOROURACIL
     Dosage: 4400 MG, QCY
     Route: 042
     Dates: start: 20180207, end: 20180207
  24. METFORMIN [Concomitant]
     Active Substance: METFORMIN HYDROCHLORIDE
  25. SITAGLIPTIN [Concomitant]
     Active Substance: SITAGLIPTIN
     Dosage: UNK
     Dates: start: 20180221
  26. TRESTAN [CYANOCOBALAMIN] [Concomitant]
     Dosage: UNK
     Dates: start: 20180314
  27. ZOLPIDEM [Concomitant]
     Active Substance: ZOLPIDEM\ZOLPIDEM TARTRATE
     Dosage: UNK
     Dates: start: 20180221
  28. OXALIPLATIN. [Suspect]
     Active Substance: OXALIPLATIN
     Indication: PANCREATIC CARCINOMA METASTATIC
     Dosage: 150 MG, QCY
     Route: 042
     Dates: start: 20180207, end: 20180207

REACTIONS (2)
  - Asthenia [Unknown]
  - Infusion related reaction [Not Recovered/Not Resolved]

NARRATIVE: CASE EVENT DATE: 20180328
